FAERS Safety Report 7606231-1 (Version None)
Quarter: 2011Q3

REPORT INFORMATION
  Report Type: 
  Country: None (occurrence: None)
  Receive Date: 20110713
  Receipt Date: 20110708
  Transmission Date: 20111222
  Serious: Yes (Death)
  Sender: FDA-Public Use
  Company Number: US-CELGENEUS-163-21880-11060921

PATIENT
  Sex: Female

DRUGS (9)
  1. DOXYCYCLINE [Concomitant]
     Route: 065
  2. ASPIRIN [Concomitant]
     Route: 065
  3. COLACE [Concomitant]
     Route: 065
  4. DECADRON [Concomitant]
     Route: 065
  5. GEODON [Concomitant]
     Route: 065
  6. REVLIMID [Suspect]
     Indication: MULTIPLE MYELOMA
     Dosage: 10 MILLIGRAM
     Route: 048
     Dates: start: 20110126, end: 20110501
  7. ACYCLOVIR [Concomitant]
     Route: 065
  8. LEVOTHYROXINE SODIUM [Concomitant]
     Route: 065
  9. MIRALAX [Concomitant]
     Route: 065

REACTIONS (1)
  - DEATH [None]
